FAERS Safety Report 7401212-5 (Version None)
Quarter: 2011Q2

REPORT INFORMATION
  Report Type: 
  Country: None (occurrence: None)
  Receive Date: 20110407
  Receipt Date: 20110329
  Transmission Date: 20111010
  Serious: Yes (Hospitalization)
  Sender: FDA-Public Use
  Company Number: KR-CEPHALON-2011001624

PATIENT
  Sex: Female

DRUGS (6)
  1. RITUXIMAB [Concomitant]
     Indication: DIFFUSE LARGE B-CELL LYMPHOMA REFRACTORY
     Dates: start: 20110322, end: 20110322
  2. MAGNESIUM OXIDE [Concomitant]
     Dates: start: 20110324
  3. METOCLOPRAMIDE [Concomitant]
     Dates: start: 20110324
  4. ASPIRIN [Concomitant]
     Dates: start: 20110205
  5. FAMOTIDINE [Concomitant]
     Dates: start: 20110324
  6. BENDAMUSTINE HCL [Suspect]
     Indication: DIFFUSE LARGE B-CELL LYMPHOMA REFRACTORY
     Route: 042
     Dates: start: 20110323

REACTIONS (2)
  - URINARY RETENTION [None]
  - CONSTIPATION [None]
